FAERS Safety Report 4402299-4 (Version None)
Quarter: 2004Q3

REPORT INFORMATION
  Report Type: 
  Country: None (occurrence: None)
  Receive Date: 20040720
  Receipt Date: 20040701
  Transmission Date: 20050211
  Serious: Yes (Other)
  Sender: FDA-Public Use
  Company Number: GB-GLAXOSMITHKLINE-B0338313A

PATIENT

DRUGS (3)
  1. RETROVIR [Suspect]
  2. VIDEX [Suspect]
     Dosage: 250MG PER DAY
  3. VIRAMUNE [Suspect]

REACTIONS (2)
  - DRUG EXPOSURE DURING PREGNANCY [None]
  - FOETAL MALFORMATION [None]
